FAERS Safety Report 9066862 (Version 1)
Quarter: 2013Q1

REPORT INFORMATION
  Report Type: Report from Study
  Country: US (occurrence: US)
  Receive Date: 20130131
  Receipt Date: 20130131
  Transmission Date: 20140127
  Serious: No
  Sender: FDA-Public Use
  Company Number: US-ABBOTT-12P-163-1007783-00

PATIENT
  Age: 56 Year
  Sex: Male

DRUGS (4)
  1. HUMIRA [Suspect]
     Indication: CROHN^S DISEASE
     Dosage: LOADING DOSE ONLY
     Dates: start: 20121107
  2. OMEPRAZOL [Concomitant]
     Indication: GASTROOESOPHAGEAL REFLUX DISEASE
  3. OMEPRAZOL [Concomitant]
     Indication: GASTRIC ULCER
  4. MULTIVITAMIN [Concomitant]
     Indication: VITAMIN SUPPLEMENTATION
     Dosage: DAILY

REACTIONS (1)
  - Diarrhoea [Not Recovered/Not Resolved]
